FAERS Safety Report 9325835 (Version 1)
Quarter: 2013Q2

REPORT INFORMATION
  Report Type: Spontaneous
  Country: US (occurrence: None)
  Receive Date: 20130603
  Receipt Date: 20130603
  Transmission Date: 20140414
  Serious: Yes (Life-Threatening, Hospitalization, Disabling)
  Sender: FDA-Public Use
  Company Number: None

PATIENT
  Age: 41 Year
  Sex: Female
  Weight: 83.2 kg

DRUGS (2)
  1. DIVALPROEX [Suspect]
     Indication: EPILEPSY
     Dosage: 2 TAB
     Route: 048
     Dates: end: 200808
  2. LEVETIRACETAM [Suspect]
     Indication: EPILEPSY
     Dosage: 2 TAB
     Route: 048
     Dates: end: 200808

REACTIONS (4)
  - Convulsion [None]
  - Burns third degree [None]
  - Product substitution issue [None]
  - Therapeutic response unexpected with drug substitution [None]
